FAERS Safety Report 6465130-1 (Version None)
Quarter: 2009Q4

REPORT INFORMATION
  Report Type: 
  Country: None (occurrence: None)
  Receive Date: 20091201
  Receipt Date: 20090421
  Transmission Date: 20100525
  Serious: No
  Sender: FDA-Public Use
  Company Number: US-AMGEN-COG343811

PATIENT
  Sex: Female

DRUGS (3)
  1. ENBREL [Suspect]
     Indication: PSORIASIS
     Route: 058
     Dates: start: 20090420
  2. ENBREL [Suspect]
     Indication: PSORIATIC ARTHROPATHY
  3. PREDNISONE TAB [Concomitant]

REACTIONS (2)
  - RASH [None]
  - SKIN WARM [None]
